FAERS Safety Report 5511504-2 (Version None)
Quarter: 2007Q4

REPORT INFORMATION
  Report Type: 
  Country: None (occurrence: None)
  Receive Date: 20071109
  Receipt Date: 20071030
  Transmission Date: 20080405
  Serious: Yes (Other)
  Sender: FDA-Public Use
  Company Number: B0480927A

PATIENT
  Age: 51 Year
  Sex: Female
  Weight: 90 kg

DRUGS (1)
  1. AVANDAMET [Suspect]
     Route: 048
     Dates: start: 20070216, end: 20070516

REACTIONS (4)
  - ANAEMIA [None]
  - ASTHENIA [None]
  - CONJUNCTIVAL DISCOLOURATION [None]
  - DYSPNOEA [None]
